FAERS Safety Report 5710045-7 (Version None)
Quarter: 2008Q2

REPORT INFORMATION
  Report Type: 
  Country: None (occurrence: None)
  Receive Date: 20080418
  Receipt Date: 20071002
  Transmission Date: 20081010
  Serious: No
  Sender: FDA-Public Use
  Company Number: US-ASTRAZENECA-2007UW23005

PATIENT
  Age: 64 Year
  Sex: Male
  Weight: 71.7 kg

DRUGS (5)
  1. METOPROLOL SUCCINATE EXTENDED RELEASE [Suspect]
     Indication: BLOOD PRESSURE
     Route: 048
     Dates: start: 20070901
  2. PLAVIX [Concomitant]
  3. LISINOPRIL AND HYDROCHLOROTHIAZIDE [Concomitant]
  4. ASPIRIN [Concomitant]
  5. CRESTOR [Concomitant]
     Route: 048

REACTIONS (3)
  - ARTHROPATHY [None]
  - DIARRHOEA [None]
  - FEELING ABNORMAL [None]
